FAERS Safety Report 16465187 (Version 2)
Quarter: 2019Q2

REPORT INFORMATION
  Report Type: Spontaneous
  Country: US (occurrence: US)
  Receive Date: 20190621
  Receipt Date: 20190627
  Transmission Date: 20190711
  Serious: Yes (Other)
  Sender: FDA-Public Use
  Company Number: US-PFIZER INC-2019263004

PATIENT
  Age: 71 Year
  Sex: Male

DRUGS (2)
  1. SUNITINIB MALATE. [Suspect]
     Active Substance: SUNITINIB MALATE
     Dosage: 37.5 MG, DAILY (ON TWO WEEKS ON AND ONE WEEK OFF SCHEDULE)
  2. SUNITINIB MALATE. [Suspect]
     Active Substance: SUNITINIB MALATE
     Indication: RENAL CELL CARCINOMA
     Dosage: 50 MG, DAILY (SIX-WEEK CYCLES WITH A TWO-WEEKS ON, ONE-WEEK OFF SCHEDULE)
     Dates: start: 2017

REACTIONS (3)
  - Folate deficiency [Recovering/Resolving]
  - Vitamin B12 deficiency [Recovering/Resolving]
  - Anaemia macrocytic [Recovering/Resolving]
